FAERS Safety Report 8382484-X (Version None)
Quarter: 2012Q2

REPORT INFORMATION
  Report Type: 
  Country: None (occurrence: None)
  Receive Date: 20120524
  Receipt Date: 20120517
  Transmission Date: 20120825
  Serious: No
  Sender: FDA-Public Use
  Company Number: US-BAYER-2012-049168

PATIENT
  Age: 75 Year
  Sex: Female

DRUGS (4)
  1. DIOVAN [Concomitant]
     Dosage: BID
  2. BETASERON [Suspect]
     Indication: MULTIPLE SCLEROSIS
     Dosage: 0.25 MG, QOD
     Route: 058
     Dates: start: 20070501
  3. DIOVAN [Concomitant]
  4. ASPIRIN [Suspect]
     Dosage: QID

REACTIONS (1)
  - EPISTAXIS [None]
